FAERS Safety Report 4502995-4 (Version None)
Quarter: 2004Q4

REPORT INFORMATION
  Report Type: 
  Country: None (occurrence: None)
  Receive Date: 20041116
  Receipt Date: 20041116
  Transmission Date: 20050328
  Serious: No
  Sender: FDA-Public Use
  Company Number: None

PATIENT
  Age: 91 Year
  Sex: Female

DRUGS (5)
  1. CEFOTETAN [Suspect]
     Indication: ARTHRITIS INFECTIVE
     Dosage: 1GM  Q12H  INTRAVENOU
     Route: 042
     Dates: start: 20040808, end: 20040809
  2. VANCOMYCIN [Concomitant]
  3. ZOSYN [Concomitant]
  4. MORPHINE [Concomitant]
  5. NORCO [Concomitant]

REACTIONS (2)
  - ANGIONEUROTIC OEDEMA [None]
  - HYPERSENSITIVITY [None]
